FAERS Safety Report 8776962 (Version 6)
Quarter: 2014Q4

REPORT INFORMATION
  Report Type: Spontaneous
  Country: US (occurrence: US)
  Receive Date: 20120911
  Receipt Date: 20141023
  Transmission Date: 20150529
  Serious: Yes (Life-Threatening, Hospitalization, Disabling, Other)
  Sender: FDA-Public Use
  Company Number: US-GLAXOSMITHKLINE-A0992657A

PATIENT
  Sex: Female
  Weight: 52.3 kg

DRUGS (8)
  1. FLOLAN [Suspect]
     Active Substance: EPOPROSTENOL SODIUM
     Indication: PULMONARY ARTERIAL HYPERTENSION
     Dosage: 5 MG, CO
     Route: 065
  2. REVATIO [Suspect]
     Active Substance: SILDENAFIL CITRATE
     Indication: PULMONARY ARTERIAL HYPERTENSION
     Dosage: 20 MG, 4 TABLETS, THREE TIMES A DAY
     Route: 048
  3. LETAIRIS [Concomitant]
     Active Substance: AMBRISENTAN
     Indication: PULMONARY ARTERIAL HYPERTENSION
     Route: 065
  4. FLOLAN [Suspect]
     Active Substance: EPOPROSTENOL SODIUM
     Dosage: UNK
  5. WARFARIN [Concomitant]
     Active Substance: WARFARIN
  6. CUBICIN [Concomitant]
     Active Substance: DAPTOMYCIN
  7. FLOLAN [Suspect]
     Active Substance: EPOPROSTENOL SODIUM
     Dosage: 5.5 NG/KG/MINUTE, CO
  8. COUMADIN [Concomitant]
     Active Substance: WARFARIN SODIUM
     Indication: PRODUCT USED FOR UNKNOWN INDICATION
     Route: 065

REACTIONS (7)
  - Back injury [Unknown]
  - Joint swelling [Unknown]
  - Hip surgery [Recovered/Resolved]
  - Diarrhoea [Unknown]
  - Hip fracture [Recovered/Resolved]
  - Fall [Unknown]
  - Anaemia [Unknown]

NARRATIVE: CASE EVENT DATE: 2012
